FAERS Safety Report 4364683-7 (Version None)
Quarter: 2004Q2

REPORT INFORMATION
  Report Type: 
  Country: None (occurrence: None)
  Receive Date: 20040521
  Receipt Date: 20040507
  Transmission Date: 20050107
  Serious: Yes (Life-Threatening, Other)
  Sender: FDA-Public Use
  Company Number: USA-2002-0001443

PATIENT
  Age: 57 Year
  Sex: Female
  Weight: 90 kg

DRUGS (9)
  1. UNIPHYL [Suspect]
     Indication: ASTHMA
     Dosage: 600 MG, DAILY, ORAL; SEE IMAGE
     Route: 048
     Dates: start: 20020607, end: 20020601
  2. VERAPAMIL [Concomitant]
  3. ACETAMINOPHEN [Concomitant]
  4. DYRENIUM (TRIAMTERENE) [Concomitant]
  5. INTAL [Concomitant]
  6. MAXAIR [Concomitant]
  7. ASTHMAHALER (EPINEPHRINE BITARTRATE) [Concomitant]
  8. BACTROBAN (MUPIROCIN) [Concomitant]
  9. WASACORT [Concomitant]

REACTIONS (10)
  - BRONCHOSPASM [None]
  - DIZZINESS [None]
  - DRUG INEFFECTIVE [None]
  - DYSPNOEA [None]
  - FATIGUE [None]
  - INFLAMMATION [None]
  - MEDICATION ERROR [None]
  - PNEUMONITIS [None]
  - SWOLLEN TONGUE [None]
  - THROMBOSIS [None]
